FAERS Safety Report 13344965 (Version 2)
Quarter: 2017Q1

REPORT INFORMATION
  Report Type: Spontaneous
  Country: US (occurrence: US)
  Receive Date: 20170317
  Receipt Date: 20170323
  Transmission Date: 20170428
  Serious: No
  Sender: FDA-Public Use
  Company Number: US-PFIZER INC-2017107353

PATIENT
  Age: 76 Year
  Sex: Female

DRUGS (1)
  1. IBRANCE [Suspect]
     Active Substance: PALBOCICLIB
     Indication: BREAST CANCER
     Dosage: 125 MG, CYCLIC [ QD X 21 D THEN 7 DAYS OFF]

REACTIONS (4)
  - Muscular weakness [Unknown]
  - Influenza like illness [Recovered/Resolved]
  - Fatigue [Unknown]
  - Lethargy [Unknown]
